FAERS Safety Report 12442825 (Version 1)
Quarter: 2016Q2

REPORT INFORMATION
  Report Type: Spontaneous
  Country: US (occurrence: None)
  Receive Date: 20160606
  Receipt Date: 20160606
  Transmission Date: 20160815
  Serious: Yes (Other)
  Sender: FDA-Public Use
  Company Number: None

PATIENT
  Age: 61 Year
  Sex: Female
  Weight: 86.18 kg

DRUGS (1)
  1. CIPROFLOXACIN 500 MG, 500 MG MFG ACTAVIS [Suspect]
     Active Substance: CIPROFLOXACIN
     Indication: KIDNEY INFECTION
     Dosage: 42 TABLET(S) TWICE A DAY TAKEN BY MOUTH
     Route: 048
     Dates: start: 20160421, end: 20160516

REACTIONS (6)
  - Muscle strain [None]
  - Myalgia [None]
  - Tenderness [None]
  - Arthralgia [None]
  - Contusion [None]
  - Swelling [None]

NARRATIVE: CASE EVENT DATE: 20160508
